FAERS Safety Report 8456086-0 (Version None)
Quarter: 2012Q2

REPORT INFORMATION
  Report Type: 
  Country: None (occurrence: None)
  Receive Date: 20120621
  Receipt Date: 20120618
  Transmission Date: 20120825
  Serious: Yes (Other)
  Sender: FDA-Public Use
  Company Number: PHEH2012US010974

PATIENT
  Sex: Female

DRUGS (17)
  1. VITAMIN D [Concomitant]
  2. CALCITRIOL [Concomitant]
  3. NEXIUM [Concomitant]
  4. VALTURNA [Suspect]
     Indication: HYPERTENSION
     Dosage: 1 DF (300/ UNKNOWN MG), DAILY
     Route: 048
     Dates: start: 20110201
  5. ZOLOFT [Concomitant]
  6. DIOVAN [Concomitant]
     Dosage: 160 MG, DAILY
  7. ASPIRIN [Concomitant]
  8. CADURA [Concomitant]
  9. SINGULAIR [Concomitant]
  10. FISH OIL [Concomitant]
  11. CALCIUM [Concomitant]
  12. PAMELOR [Concomitant]
  13. LASIX [Concomitant]
  14. BYSTOLIC [Concomitant]
  15. PLAXIX [Concomitant]
  16. PRAMPERXOLE [Concomitant]
  17. CRESTOR [Concomitant]

REACTIONS (8)
  - RASH [None]
  - VARICOSE VEIN RUPTURED [None]
  - GAIT DISTURBANCE [None]
  - OEDEMA PERIPHERAL [None]
  - RESPIRATORY FAILURE [None]
  - PRURITUS [None]
  - HAEMOGLOBIN DECREASED [None]
  - HYPERTENSION [None]
